FAERS Safety Report 21160699 (Version 1)
Quarter: 2022Q3

REPORT INFORMATION
  Report Type: Spontaneous
  Country: JP (occurrence: JP)
  Receive Date: 20220802
  Receipt Date: 20220802
  Transmission Date: 20221026
  Serious: Yes (Other)
  Sender: FDA-Public Use
  Company Number: None

PATIENT
  Age: 36 Year
  Sex: Female

DRUGS (7)
  1. OXYCODONE HYDROCHLORIDE [Suspect]
     Active Substance: OXYCODONE HYDROCHLORIDE
     Indication: Cancer pain
     Route: 042
  2. OXYCODONE HYDROCHLORIDE [Suspect]
     Active Substance: OXYCODONE HYDROCHLORIDE
     Route: 042
  3. NALDEMEDINE [Suspect]
     Active Substance: NALDEMEDINE
     Indication: Constipation
     Route: 048
  4. IRINOTECAN [Concomitant]
     Active Substance: IRINOTECAN
     Indication: Cervix carcinoma stage II
     Route: 065
  5. NEDAPLATIN [Concomitant]
     Active Substance: NEDAPLATIN
     Indication: Cervix carcinoma stage II
     Route: 065
  6. ACETAMINOPHEN [Concomitant]
     Active Substance: ACETAMINOPHEN
     Indication: Product used for unknown indication
     Route: 048
  7. MEROPENEM [Concomitant]
     Active Substance: MEROPENEM
     Indication: Product used for unknown indication
     Route: 065

REACTIONS (3)
  - Delirium [Recovered/Resolved]
  - Constipation [Unknown]
  - Drug withdrawal syndrome [Unknown]
